FAERS Safety Report 11351104 (Version 1)
Quarter: 2015Q3

REPORT INFORMATION
  Report Type: Spontaneous
  Country: US (occurrence: US)
  Receive Date: 20150807
  Receipt Date: 20150807
  Transmission Date: 20151125
  Serious: No
  Sender: FDA-Public Use
  Company Number: US-JNJFOC-20141020700

PATIENT
  Age: 20 Year
  Sex: Male
  Weight: 60.78 kg

DRUGS (5)
  1. VITAMINS [Concomitant]
     Active Substance: VITAMINS
     Indication: UNEVALUABLE EVENT
     Dosage: 3 WEEKS
     Route: 065
  2. MENS ROGAINE EXTRA STRENGTH [Suspect]
     Active Substance: MINOXIDIL
     Route: 061
  3. MENS ROGAINE EXTRA STRENGTH [Suspect]
     Active Substance: MINOXIDIL
     Indication: ALOPECIA
     Dosage: THE SIZE OF A GOLFBALL;??ONE NIGHT AND TWICE THE NEXT DAY
     Route: 061
     Dates: start: 20141023, end: 20141024
  4. BIOTIN [Concomitant]
     Active Substance: BIOTIN
     Indication: ALOPECIA
     Dosage: 3 WEEKS
     Route: 065
  5. ST JOHNS WORT [Concomitant]
     Active Substance: ST. JOHN^S WORT
     Indication: ELEVATED MOOD
     Dosage: ONE MONTH
     Route: 065

REACTIONS (2)
  - Alopecia [Unknown]
  - Burning sensation [Recovered/Resolved]

NARRATIVE: CASE EVENT DATE: 20141024
